FAERS Safety Report 7158712-5 (Version None)
Quarter: 2010Q4

REPORT INFORMATION
  Report Type: 
  Country: None (occurrence: None)
  Receive Date: 20101214
  Receipt Date: 20101208
  Transmission Date: 20110411
  Serious: Yes (Life-Threatening, Other)
  Sender: FDA-Public Use
  Company Number: SG-CELGENEUS-141-21880-10111242

PATIENT
  Age: 77 Year
  Sex: Female

DRUGS (1)
  1. REVLIMID [Suspect]
     Route: 048
     Dates: start: 20100901

REACTIONS (4)
  - ABDOMINAL SEPSIS [None]
  - APPENDICITIS [None]
  - DIZZINESS [None]
  - PANCYTOPENIA [None]
